FAERS Safety Report 5693632-4 (Version None)
Quarter: 2008Q2

REPORT INFORMATION
  Report Type: 
  Country: None (occurrence: None)
  Receive Date: 20080403
  Receipt Date: 20080324
  Transmission Date: 20081010
  Serious: Yes (Hospitalization, Other)
  Sender: FDA-Public Use
  Company Number: AU-WYE-H01914208

PATIENT
  Sex: Female

DRUGS (1)
  1. TEMSIROLIMUS [Suspect]
     Indication: MULTIPLE SCLEROSIS
     Route: 048
     Dates: start: 20030912, end: 20050511

REACTIONS (2)
  - OVARIAN CANCER RECURRENT [None]
  - PARANEOPLASTIC CEREBELLAR DEGENERATION [None]
